FAERS Safety Report 8784187 (Version 1)
Quarter: 2012Q4

REPORT INFORMATION
  Report Type: Spontaneous
  Country: US (occurrence: None)
  Receive Date: 20120906
  Receipt Date: 20120906
  Transmission Date: 20130627
  Serious: Yes (Hospitalization)
  Sender: FDA-Public Use
  Company Number: None

PATIENT
  Age: 72 Year
  Sex: Female
  Weight: 86.37 kg

DRUGS (23)
  1. CABOZANTINIB [Suspect]
     Indication: METASTATIC BREAST CANCER
     Route: 048
     Dates: start: 20120705, end: 20120808
  2. CABOZANTINIB [Suspect]
     Indication: METASTATIC BREAST CANCER
     Route: 048
     Dates: start: 20120514, end: 20120704
  3. ALBUTEROL [Concomitant]
  4. DIPHENHYDRAMINE [Concomitant]
  5. BENZONATATE [Concomitant]
  6. CALCIUM CARBONATE [Concomitant]
  7. CELEBREX [Concomitant]
  8. COMPAZINE [Concomitant]
  9. LASIX [Concomitant]
  10. LEVAQUIN [Concomitant]
  11. LOMOTIL (DIPHENOXYLATE W/ATROPINE) [Concomitant]
  12. LOSARTAN [Concomitant]
  13. NYSTATIN [Concomitant]
  14. PRILOSEC (OMEPRAZOLE) [Concomitant]
  15. PROBIOTIC [Concomitant]
  16. PROCHLORPERAZINE MALEATE [Concomitant]
  17. SYNTHROID [Concomitant]
  18. TRIAMCINOLONE ACETONIDE [Concomitant]
  19. VIACTIV [Concomitant]
  20. ZOMIG [Concomitant]
  21. DILAUDID (HYDROMORPHONE HCL) [Concomitant]
  22. DURAGESIC (FENTANYL) [Concomitant]
  23. EXCEDRIN MIGRAINE (APAP 250MG +ASA 250MG +CAFFEINE 65MG) [Concomitant]

REACTIONS (5)
  - Metastatic neoplasm [None]
  - Pyrexia [None]
  - Constipation [None]
  - Oedema peripheral [None]
  - Abdominal pain lower [None]
